FAERS Safety Report 9608360 (Version 1)
Quarter: 2013Q4

REPORT INFORMATION
  Report Type: Spontaneous
  Country: US (occurrence: US)
  Receive Date: 20131009
  Receipt Date: 20131009
  Transmission Date: 20140711
  Serious: No
  Sender: FDA-Public Use
  Company Number: US-PFIZER INC-2013285013

PATIENT
  Sex: Female

DRUGS (1)
  1. EPLERENONE [Suspect]
     Dosage: 50 MG, UNK
     Dates: start: 20121001, end: 20130501

REACTIONS (12)
  - Reaction to drug excipients [Unknown]
  - Peripheral coldness [Unknown]
  - Lymphoedema [Unknown]
  - Fluid retention [Unknown]
  - Ocular hyperaemia [Unknown]
  - Eye irritation [Unknown]
  - Pain [Unknown]
  - Muscular weakness [Unknown]
  - Swelling [Unknown]
  - Red blood cell sedimentation rate increased [Unknown]
  - C-reactive protein increased [Unknown]
  - Lymphadenopathy [Unknown]
